FAERS Safety Report 23452566 (Version 2)
Quarter: 2024Q1

REPORT INFORMATION
  Report Type: Report from Study
  Country: US (occurrence: US)
  Receive Date: 20240129
  Receipt Date: 20240215
  Transmission Date: 20240410
  Serious: Yes (Other)
  Sender: FDA-Public Use
  Company Number: US-JNJFOC-20231216798

PATIENT
  Age: 74 Year
  Sex: Female
  Weight: 62.652 kg

DRUGS (8)
  1. MACITENTAN [Suspect]
     Active Substance: MACITENTAN
     Indication: Pulmonary arterial hypertension
     Dosage: THERAPY DATE: 17/NOV/2023
     Route: 048
  2. MACITENTAN [Suspect]
     Active Substance: MACITENTAN
     Dosage: THERAPY START DATE: /DEC/2023
     Route: 048
     Dates: end: 202312
  3. ASPIRIN [Concomitant]
     Active Substance: ASPIRIN
     Dosage: 10-25 MCG
  4. PROCARDIA [Concomitant]
     Active Substance: NIFEDIPINE
  5. PLAQUENIL [Concomitant]
     Active Substance: HYDROXYCHLOROQUINE SULFATE
  6. LASIX [Concomitant]
     Active Substance: FUROSEMIDE
  7. SILDENAFIL [Concomitant]
     Active Substance: SILDENAFIL
  8. AMBRISENTAN [Concomitant]
     Active Substance: AMBRISENTAN

REACTIONS (4)
  - Migraine [Recovered/Resolved]
  - Fluid retention [Recovered/Resolved]
  - Peripheral swelling [Recovered/Resolved]
  - Therapy change [Unknown]

NARRATIVE: CASE EVENT DATE: 20230211
